FAERS Safety Report 19457249 (Version 1)
Quarter: 2021Q2

REPORT INFORMATION
  Report Type: Spontaneous
  Country: PT (occurrence: PT)
  Receive Date: 20210624
  Receipt Date: 20210624
  Transmission Date: 20210717
  Serious: Yes (Death, Life-Threatening, Hospitalization, Other)
  Sender: FDA-Public Use
  Company Number: PT-STRIDES ARCOLAB LIMITED-2021SP006760

PATIENT
  Age: 43 Year
  Sex: Male

DRUGS (2)
  1. PREDNISOLONE. [Suspect]
     Active Substance: PREDNISOLONE
     Indication: MYASTHENIA GRAVIS
     Dosage: 50 MILLIGRAM, PER DAY
     Route: 048
  2. PYRIDOSTIGMINE [Concomitant]
     Active Substance: PYRIDOSTIGMINE
     Indication: MYASTHENIA GRAVIS
     Dosage: 90 MILLIGRAM, PER DAY
     Route: 065

REACTIONS (17)
  - Pneumonia [Fatal]
  - Diabetes mellitus [Recovered/Resolved]
  - Pulmonary mucormycosis [Fatal]
  - Respiratory failure [Fatal]
  - Diabetic ketoacidosis [Recovered/Resolved]
  - Atelectasis [Fatal]
  - Leukocytosis [Fatal]
  - Necrotising bronchiolitis [Fatal]
  - Nerve compression [Fatal]
  - Lung infiltration [Fatal]
  - Bronchopulmonary aspergillosis [Unknown]
  - Lung consolidation [Fatal]
  - Pleural effusion [Fatal]
  - Haemoptysis [Fatal]
  - Lung abscess [Fatal]
  - Paralysis recurrent laryngeal nerve [Fatal]
  - Bronchitis bacterial [Unknown]
